FAERS Safety Report 19112496 (Version 1)
Quarter: 2021Q2

REPORT INFORMATION
  Report Type: Spontaneous
  Country: US (occurrence: US)
  Receive Date: 20210408
  Receipt Date: 20210408
  Transmission Date: 20210717
  Serious: No
  Sender: FDA-Public Use
  Company Number: US-MYLANLABS-2021M1020065

PATIENT
  Sex: Female

DRUGS (1)
  1. ESTRADIOL TRANSDERMAL SYSTEM [Suspect]
     Active Substance: ESTRADIOL
     Indication: PRODUCT USED FOR UNKNOWN INDICATION
     Dosage: 0.075 MILLIGRAM, QD
     Route: 062
     Dates: start: 2020, end: 2021

REACTIONS (8)
  - Product adhesion issue [Unknown]
  - Product quality issue [Unknown]
  - Hot flush [Unknown]
  - Application site papules [Unknown]
  - Application site swelling [Unknown]
  - Application site irritation [Unknown]
  - Application site pruritus [Unknown]
  - Application site erythema [Unknown]
